FAERS Safety Report 21989478 (Version 6)
Quarter: 2023Q2

REPORT INFORMATION
  Report Type: Spontaneous
  Country: CA (occurrence: CA)
  Receive Date: 20230214
  Receipt Date: 20230615
  Transmission Date: 20230722
  Serious: Yes (Life-Threatening, Hospitalization, Other)
  Sender: FDA-Public Use
  Company Number: CA-002147023-NVSC2023CA027550

PATIENT
  Age: 35 Year
  Sex: Female

DRUGS (70)
  1. ONDANSETRON [Suspect]
     Active Substance: ONDANSETRON
     Indication: Morning sickness
     Dosage: 8 MG
     Route: 042
  2. ONDANSETRON [Suspect]
     Active Substance: ONDANSETRON
     Indication: Antiemetic supportive care
     Dosage: 8 MG, Q8H
     Route: 042
  3. ONDANSETRON [Suspect]
     Active Substance: ONDANSETRON
     Indication: Nausea
     Dosage: UNK
     Route: 042
  4. ONDANSETRON [Suspect]
     Active Substance: ONDANSETRON
     Indication: Hyperemesis gravidarum
     Dosage: UNK
     Route: 065
  5. ONDANSETRON [Suspect]
     Active Substance: ONDANSETRON
     Indication: Vomiting
     Dosage: UNK
     Route: 065
  6. ONDANSETRON [Suspect]
     Active Substance: ONDANSETRON
     Dosage: UNK
     Route: 065
  7. ONDANSETRON [Suspect]
     Active Substance: ONDANSETRON
     Dosage: 8 MG
     Route: 065
  8. ONDANSETRON HYDROCHLORIDE [Suspect]
     Active Substance: ONDANSETRON HYDROCHLORIDE
     Indication: Nausea
     Dosage: 8 MG
     Route: 042
  9. ONDANSETRON HYDROCHLORIDE [Suspect]
     Active Substance: ONDANSETRON HYDROCHLORIDE
     Indication: Hyperemesis gravidarum
     Dosage: UNK
     Route: 048
  10. ONDANSETRON HYDROCHLORIDE [Suspect]
     Active Substance: ONDANSETRON HYDROCHLORIDE
     Indication: Vomiting
  11. PROCHLORPERAZINE [Suspect]
     Active Substance: PROCHLORPERAZINE
     Indication: Morning sickness
     Dosage: 10 MG, QID
     Route: 048
  12. PROCHLORPERAZINE [Suspect]
     Active Substance: PROCHLORPERAZINE
     Indication: Antiemetic supportive care
     Dosage: 5 MG, QID
     Route: 048
  13. PROCHLORPERAZINE [Suspect]
     Active Substance: PROCHLORPERAZINE
     Indication: Nausea
     Dosage: 5 MG, Q6H
     Route: 048
  14. PROCHLORPERAZINE [Suspect]
     Active Substance: PROCHLORPERAZINE
     Indication: Hyperemesis gravidarum
     Dosage: UNK
     Route: 048
  15. PROCHLORPERAZINE [Suspect]
     Active Substance: PROCHLORPERAZINE
     Indication: Vomiting
     Dosage: UNK
     Route: 048
  16. PROCHLORPERAZINE [Suspect]
     Active Substance: PROCHLORPERAZINE
     Dosage: UNK
     Route: 048
  17. PROCHLORPERAZINE [Suspect]
     Active Substance: PROCHLORPERAZINE
     Dosage: 5 MG
     Route: 048
  18. PROCHLORPERAZINE [Suspect]
     Active Substance: PROCHLORPERAZINE
     Dosage: 10 MG, Q6H
     Route: 048
  19. PROCHLORPERAZINE [Suspect]
     Active Substance: PROCHLORPERAZINE
     Dosage: 10 MG
     Route: 048
  20. LORAZEPAM [Suspect]
     Active Substance: LORAZEPAM
     Indication: Serotonin syndrome
     Dosage: 1 G
     Route: 042
  21. LORAZEPAM [Suspect]
     Active Substance: LORAZEPAM
     Dosage: 2 G
     Route: 042
  22. LORAZEPAM [Suspect]
     Active Substance: LORAZEPAM
     Dosage: 1 G
     Route: 048
  23. LORAZEPAM [Suspect]
     Active Substance: LORAZEPAM
     Dosage: 1 MG
     Route: 042
  24. LORAZEPAM [Suspect]
     Active Substance: LORAZEPAM
     Dosage: UNK
     Route: 042
  25. LORAZEPAM [Suspect]
     Active Substance: LORAZEPAM
     Dosage: UNK
     Route: 042
  26. LORAZEPAM [Suspect]
     Active Substance: LORAZEPAM
     Dosage: UNK
     Route: 048
  27. LORAZEPAM [Suspect]
     Active Substance: LORAZEPAM
     Dosage: 1 MG
     Route: 048
  28. LORAZEPAM [Suspect]
     Active Substance: LORAZEPAM
     Dosage: 1 MG
     Route: 042
  29. LORAZEPAM [Suspect]
     Active Substance: LORAZEPAM
     Dosage: 2 MG, QID
     Route: 042
  30. METOCLOPRAMIDE [Suspect]
     Active Substance: METOCLOPRAMIDE
     Indication: Product used for unknown indication
     Dosage: UNK
     Route: 065
  31. SODIUM BICARBONATE [Suspect]
     Active Substance: SODIUM BICARBONATE
     Indication: Sinus tachycardia
     Dosage: UNK
     Route: 065
  32. SODIUM BICARBONATE [Suspect]
     Active Substance: SODIUM BICARBONATE
     Indication: Serotonin syndrome
     Dosage: 3 DOSAGE FORM
     Route: 042
  33. SUMATRIPTAN [Suspect]
     Active Substance: SUMATRIPTAN
     Indication: Migraine
     Dosage: UNK
     Route: 065
  34. SUMATRIPTAN [Suspect]
     Active Substance: SUMATRIPTAN
     Dosage: 50 MG (ONCE)
     Route: 048
  35. DOXYLAMINE SUCCINATE\PYRIDOXINE HYDROCHLORIDE [Suspect]
     Active Substance: DOXYLAMINE SUCCINATE\PYRIDOXINE HYDROCHLORIDE
     Indication: Morning sickness
     Dosage: 10 MG
     Route: 048
  36. DOXYLAMINE SUCCINATE\PYRIDOXINE HYDROCHLORIDE [Suspect]
     Active Substance: DOXYLAMINE SUCCINATE\PYRIDOXINE HYDROCHLORIDE
     Indication: Vomiting
     Dosage: 20 MG
     Route: 048
  37. DOXYLAMINE SUCCINATE\PYRIDOXINE HYDROCHLORIDE [Suspect]
     Active Substance: DOXYLAMINE SUCCINATE\PYRIDOXINE HYDROCHLORIDE
     Indication: Nausea
     Dosage: UNK
     Route: 048
  38. DOXYLAMINE SUCCINATE\PYRIDOXINE HYDROCHLORIDE [Suspect]
     Active Substance: DOXYLAMINE SUCCINATE\PYRIDOXINE HYDROCHLORIDE
     Indication: Hyperemesis gravidarum
     Dosage: 10 MG, QID
     Route: 048
  39. ACETAMINOPHEN [Suspect]
     Active Substance: ACETAMINOPHEN
     Indication: Body temperature increased
     Dosage: 1 G
     Route: 048
  40. ACETAMINOPHEN [Suspect]
     Active Substance: ACETAMINOPHEN
     Indication: Pyrexia
     Dosage: UNK
     Route: 048
  41. ACETAMINOPHEN [Suspect]
     Active Substance: ACETAMINOPHEN
     Dosage: UNK
     Route: 065
  42. DEXTROSE [Suspect]
     Active Substance: DEXTROSE\DEXTROSE MONOHYDRATE
     Indication: Sinus tachycardia
     Dosage: UNK
     Route: 042
  43. DEXTROSE [Suspect]
     Active Substance: DEXTROSE\DEXTROSE MONOHYDRATE
     Indication: Serotonin syndrome
     Dosage: UNK
     Route: 041
  44. DEXTROSE [Suspect]
     Active Substance: DEXTROSE\DEXTROSE MONOHYDRATE
     Dosage: UNK
     Route: 065
  45. DOXYLAMINE [Suspect]
     Active Substance: DOXYLAMINE
     Indication: Antiemetic supportive care
     Dosage: UNK
     Route: 048
  46. SUMATRIPTAN SUCCINATE [Suspect]
     Active Substance: SUMATRIPTAN SUCCINATE
     Indication: Migraine
     Dosage: 50 MG
     Route: 048
  47. SUMATRIPTAN SUCCINATE [Suspect]
     Active Substance: SUMATRIPTAN SUCCINATE
     Dosage: UNK
     Route: 065
  48. SUMATRIPTAN SUCCINATE [Suspect]
     Active Substance: SUMATRIPTAN SUCCINATE
     Dosage: 1 DOSAGE FORM
     Route: 048
  49. SUMATRIPTAN SUCCINATE [Suspect]
     Active Substance: SUMATRIPTAN SUCCINATE
     Dosage: UNK
     Route: 065
  50. FAMOTIDINE [Suspect]
     Active Substance: FAMOTIDINE
     Indication: Morning sickness
     Dosage: 20 MG
     Route: 042
  51. FAMOTIDINE [Suspect]
     Active Substance: FAMOTIDINE
     Indication: Hyperemesis gravidarum
     Dosage: 20 MG, QD
     Route: 042
  52. FAMOTIDINE [Suspect]
     Active Substance: FAMOTIDINE
     Indication: Vomiting
     Dosage: UNK
     Route: 042
  53. FAMOTIDINE [Suspect]
     Active Substance: FAMOTIDINE
     Indication: Nausea
     Dosage: UNK
     Route: 048
  54. FAMOTIDINE [Suspect]
     Active Substance: FAMOTIDINE
     Dosage: 20 MG, QD
     Route: 042
  55. FAMOTIDINE [Suspect]
     Active Substance: FAMOTIDINE
     Dosage: UNK
     Route: 065
  56. DOXYLAMINE SUCCINATE [Suspect]
     Active Substance: DOXYLAMINE SUCCINATE
     Indication: Hyperemesis gravidarum
     Dosage: 40 MG, QD
     Route: 048
  57. DOXYLAMINE SUCCINATE [Suspect]
     Active Substance: DOXYLAMINE SUCCINATE
     Indication: Vomiting
     Dosage: 10 MG, Q12H
     Route: 048
  58. DOXYLAMINE SUCCINATE [Suspect]
     Active Substance: DOXYLAMINE SUCCINATE
     Indication: Nausea
     Dosage: 20 MG, QD
     Route: 048
  59. DOXYLAMINE SUCCINATE [Suspect]
     Active Substance: DOXYLAMINE SUCCINATE
     Indication: Morning sickness
     Dosage: 1 DOSAGE FORM
     Route: 048
  60. DOXYLAMINE SUCCINATE [Suspect]
     Active Substance: DOXYLAMINE SUCCINATE
     Indication: Antiemetic supportive care
     Dosage: UNK, TID
     Route: 048
  61. DIMENHYDRINATE [Suspect]
     Active Substance: DIMENHYDRINATE
     Indication: Morning sickness
     Dosage: 50 MG
     Route: 042
  62. DIMENHYDRINATE [Suspect]
     Active Substance: DIMENHYDRINATE
     Indication: Antiemetic supportive care
     Dosage: 50 MG, Q4H
     Route: 042
  63. DIMENHYDRINATE [Suspect]
     Active Substance: DIMENHYDRINATE
     Indication: Hyperemesis gravidarum
     Dosage: UNK
     Route: 065
  64. DIMENHYDRINATE [Suspect]
     Active Substance: DIMENHYDRINATE
     Indication: Vomiting
     Dosage: UNK
     Route: 042
  65. DIMENHYDRINATE [Suspect]
     Active Substance: DIMENHYDRINATE
     Indication: Nausea
     Dosage: UNK
     Route: 048
  66. DIMENHYDRINATE [Suspect]
     Active Substance: DIMENHYDRINATE
     Dosage: 50 MG, Q4H
     Route: 042
  67. PYRIDOXINE [Suspect]
     Active Substance: PYRIDOXINE
     Indication: Antiemetic supportive care
     Dosage: UNK
     Route: 048
  68. PYRIDOXINE [Suspect]
     Active Substance: PYRIDOXINE
     Indication: Vomiting
     Dosage: 1 DOSAGE FORM
     Route: 048
  69. PYRIDOXINE [Suspect]
     Active Substance: PYRIDOXINE
     Indication: Nausea
     Dosage: UNK, TID
     Route: 048
  70. PYRIDOXINE [Suspect]
     Active Substance: PYRIDOXINE
     Indication: Morning sickness

REACTIONS (26)
  - Clonus [Recovered/Resolved]
  - Muscle spasticity [Recovered/Resolved]
  - Foetal heart rate abnormal [Recovered/Resolved]
  - Muscle contractions involuntary [Recovered/Resolved]
  - Sinus tachycardia [Recovered/Resolved]
  - Extensor plantar response [Recovered/Resolved]
  - Human chorionic gonadotropin decreased [Recovered/Resolved]
  - C-reactive protein abnormal [Recovered/Resolved]
  - Blood lactic acid increased [Recovered/Resolved]
  - Tremor [Recovered/Resolved]
  - Myalgia [Recovered/Resolved]
  - Hypertonia [Recovered/Resolved]
  - Hyperhidrosis [Recovered/Resolved]
  - Emotional distress [Recovered/Resolved]
  - Tachycardia [Recovered/Resolved]
  - Exposure during pregnancy [Unknown]
  - Pyrexia [Recovered/Resolved]
  - Hyperreflexia [Recovered/Resolved]
  - Abortion spontaneous [Recovered/Resolved]
  - Serotonin syndrome [Recovered/Resolved]
  - Body temperature increased [Recovered/Resolved]
  - Anaphylactic reaction [Recovered/Resolved]
  - Maternal exposure during pregnancy [Unknown]
  - Drug ineffective for unapproved indication [Recovered/Resolved]
  - Therapy non-responder [Recovered/Resolved]
  - Off label use [Recovered/Resolved]
